FAERS Safety Report 5815879-6 (Version None)
Quarter: 2008Q3

REPORT INFORMATION
  Report Type: 
  Country: None (occurrence: None)
  Receive Date: 20080716
  Receipt Date: 20080716
  Transmission Date: 20090109
  Serious: Yes (Death, Life-Threatening, Hospitalization)
  Sender: FDA-Public Use
  Company Number: None

PATIENT
  Age: 63 Year
  Sex: Female
  Weight: 45.7 kg

DRUGS (7)
  1. VINCRISTINE [Suspect]
     Indication: T-CELL LYMPHOMA
     Dosage: 1.4 MG/M2 = 2 MG ONCE IV BOLUS
     Route: 040
     Dates: start: 20070926, end: 20070926
  2. DOXORUBICIN HCL [Suspect]
     Dosage: 50 MG/M2 = 70MG ONCE IV BOLUS
     Route: 040
     Dates: start: 20070926, end: 20070926
  3. ESOMEPRAZOLE [Concomitant]
  4. SULFASALAZINE [Concomitant]
  5. LEVOFLOXACIN [Concomitant]
  6. METRONIDAZOLE HCL [Concomitant]
  7. PROCHLOROPERAZINE [Concomitant]

REACTIONS (15)
  - ACIDOSIS [None]
  - ACUTE RESPIRATORY DISTRESS SYNDROME [None]
  - BLOOD LACTIC ACID INCREASED [None]
  - CHILLS [None]
  - CONTINUOUS HAEMODIAFILTRATION [None]
  - FEBRILE NEUTROPENIA [None]
  - FEELING ABNORMAL [None]
  - GASTROINTESTINAL ISCHAEMIA [None]
  - HYPOTENSION [None]
  - HYPOXIA [None]
  - METABOLIC ACIDOSIS [None]
  - RALES [None]
  - RENAL FAILURE [None]
  - RHABDOMYOLYSIS [None]
  - SEPSIS [None]
